FAERS Safety Report 8905591 (Version 1)
Quarter: 2012Q4

REPORT INFORMATION
  Report Type: 
  Country: IN (occurrence: IN)
  Receive Date: 20121113
  Receipt Date: 20121113
  Transmission Date: 20130627
  Serious: Yes (Other)
  Sender: FDA-Public Use
  Company Number: IN-WATSON-2012-19048

PATIENT
  Age: 6 Year
  Sex: Male

DRUGS (8)
  1. PREDNISOLONE (UNKNOWN) [Suspect]
     Indication: PRECURSOR T-LYMPHOBLASTIC LYMPHOMA/LEUKAEMIA
     Dosage: 728 mg, single
     Route: 065
  2. L-ASPARAGINASE [Suspect]
     Indication: PRECURSOR T-LYMPHOBLASTIC LYMPHOMA/LEUKAEMIA
     Dosage: 40 g, single
     Route: 065
  3. DAUNORUBICIN [Suspect]
     Indication: PRECURSOR T-LYMPHOBLASTIC LYMPHOMA/LEUKAEMIA
     Dosage: 40 mg, single
     Route: 065
  4. VINCRISTINE [Suspect]
     Indication: PRECURSOR T-LYMPHOBLASTIC LYMPHOMA/LEUKAEMIA
     Dosage: 5 mg, single
  5. METHOTREXATE [Suspect]
     Indication: PRECURSOR T-LYMPHOBLASTIC LYMPHOMA/LEUKAEMIA
     Dosage: 36 mg, single
     Route: 037
  6. CYCLOPHOSPHAMIDE [Suspect]
     Indication: PRECURSOR T-LYMPHOBLASTIC LYMPHOMA/LEUKAEMIA
     Dosage: 500 mg, single
     Route: 065
  7. MERCAPTOPURINE [Suspect]
     Indication: PRECURSOR T-LYMPHOBLASTIC LYMPHOMA/LEUKAEMIA
     Dosage: 840 mg, single
     Route: 065
  8. CYTARABINE [Suspect]
     Indication: PRECURSOR T-LYMPHOBLASTIC LYMPHOMA/LEUKAEMIA
     Dosage: 600 mg, single
     Route: 065

REACTIONS (4)
  - Neutropenic colitis [Recovering/Resolving]
  - Sepsis [Recovering/Resolving]
  - Toxic dilatation of intestine [Recovering/Resolving]
  - Colitis [Recovering/Resolving]
